FAERS Safety Report 7966537-3 (Version None)
Quarter: 2011Q4

REPORT INFORMATION
  Report Type: 
  Country: None (occurrence: None)
  Receive Date: 20111208
  Receipt Date: 20111129
  Transmission Date: 20120403
  Serious: Yes (Hospitalization)
  Sender: FDA-Public Use
  Company Number: IT-ASTRAZENECA-2011SE69364

PATIENT
  Age: 25609 Day
  Sex: Male

DRUGS (4)
  1. IRESSA [Suspect]
     Indication: LUNG CARCINOMA CELL TYPE UNSPECIFIED STAGE 0
     Route: 048
     Dates: start: 20110729, end: 20111028
  2. RAMIPRIL [Concomitant]
     Route: 048
     Dates: start: 20110715, end: 20111118
  3. PRAZEPAM [Concomitant]
     Route: 048
     Dates: start: 20050910, end: 20111118
  4. IRESSA [Suspect]
     Indication: LUNG ADENOCARCINOMA
     Route: 048
     Dates: start: 20110729, end: 20111028

REACTIONS (4)
  - MEMORY IMPAIRMENT [None]
  - APHASIA [None]
  - REVERSIBLE ISCHAEMIC NEUROLOGICAL DEFICIT [None]
  - VISUAL FIELD DEFECT [None]
